FAERS Safety Report 11713934 (Version 1)
Quarter: 2015Q4

REPORT INFORMATION
  Report Type: Spontaneous
  Country: US (occurrence: US)
  Receive Date: 20151109
  Receipt Date: 20151109
  Transmission Date: 20160304
  Serious: No
  Sender: FDA-Public Use
  Company Number: US-APOTEX-2015AP009925

PATIENT
  Sex: Male

DRUGS (1)
  1. FENTANYL TRANSDERMAL SYSTEM [Suspect]
     Active Substance: FENTANYL
     Indication: PAIN
     Dosage: 1/48 HRS
     Route: 062

REACTIONS (4)
  - Product substitution issue [Unknown]
  - Breakthrough pain [Unknown]
  - Product adhesion issue [Unknown]
  - Drug ineffective [Unknown]
